FAERS Safety Report 4666374-1 (Version None)
Quarter: 2005Q2

REPORT INFORMATION
  Report Type: 
  Country: None (occurrence: None)
  Receive Date: 20050519
  Receipt Date: 20050510
  Transmission Date: 20051028
  Serious: Yes (Hospitalization)
  Sender: FDA-Public Use
  Company Number: FR-BRISTOL-MYERS SQUIBB COMPANY-12964318

PATIENT
  Age: 72 Year
  Sex: Male

DRUGS (2)
  1. ELISOR TABS [Suspect]
     Indication: CEREBROVASCULAR ACCIDENT
     Dosage: DOSE DECREASED TO 20MG PER DAY ON 08-APR-2005
     Route: 048
     Dates: start: 20041019
  2. PLAVIX [Concomitant]
     Dates: start: 20040908

REACTIONS (2)
  - GASTROINTESTINAL DISORDER [None]
  - PETIT MAL EPILEPSY [None]
